FAERS Safety Report 10767388 (Version 2)
Quarter: 2015Q1

REPORT INFORMATION
  Report Type: Spontaneous
  Country: FR (occurrence: FR)
  Receive Date: 20150205
  Receipt Date: 20150212
  Transmission Date: 20150721
  Serious: Yes (Hospitalization)
  Sender: FDA-Public Use
  Company Number: FR-MYLANLABS-2015M1002858

PATIENT

DRUGS (10)
  1. FONDAPARINUX [Suspect]
     Active Substance: FONDAPARINUX
     Indication: LEFT VENTRICULAR FAILURE
     Dosage: 7.5 MG, QD
     Route: 058
     Dates: start: 20140610
  2. KARDEGIC [Suspect]
     Active Substance: ASPIRIN LYSINE
     Indication: LEFT VENTRICULAR FAILURE
     Dosage: UNK
     Route: 048
     Dates: start: 20140618
  3. TARCEVA [Suspect]
     Active Substance: ERLOTINIB HYDROCHLORIDE
     Indication: ADENOCARCINOMA
     Dosage: 150 MG, QD
     Route: 048
     Dates: start: 20140516
  4. AUGMENTIN [Suspect]
     Active Substance: AMOXICILLIN\CLAVULANATE POTASSIUM
     Dosage: UNK
     Dates: start: 20140715, end: 20140718
  5. ERYFLUID [Suspect]
     Active Substance: ERYTHROMYCIN
     Indication: FOLLICULITIS
     Dosage: UNK
     Route: 061
     Dates: start: 20140528
  6. DOXYCYCLINE. [Suspect]
     Active Substance: DOXYCYCLINE
     Indication: FOLLICULITIS
     Dosage: 100 MG, QD
     Dates: start: 201407, end: 20140804
  7. CARDENSIEL [Suspect]
     Active Substance: BISOPROLOL FUMARATE
     Indication: LEFT VENTRICULAR FAILURE
     Dosage: 5 MG, DAILY
     Route: 048
     Dates: start: 20140610
  8. FONDAPARINUX [Suspect]
     Active Substance: FONDAPARINUX
     Indication: OFF LABEL USE
  9. CORDARONE [Suspect]
     Active Substance: AMIODARONE HYDROCHLORIDE
     Indication: LEFT VENTRICULAR FAILURE
     Dosage: 200 MG, 5XW
     Route: 048
     Dates: start: 20140610
  10. LASILIX                            /00032601/ [Suspect]
     Active Substance: FUROSEMIDE
     Indication: LEFT VENTRICULAR FAILURE
     Dosage: 40 MG, DAILY
     Route: 048
     Dates: start: 20140610

REACTIONS (2)
  - Pancreatitis acute [Recovered/Resolved]
  - Product use issue [Not Recovered/Not Resolved]

NARRATIVE: CASE EVENT DATE: 20140803
